FAERS Safety Report 7551877-2 (Version None)
Quarter: 2011Q2

REPORT INFORMATION
  Report Type: 
  Country: None (occurrence: None)
  Receive Date: 20110616
  Receipt Date: 20110613
  Transmission Date: 20111010
  Serious: Yes (Death)
  Sender: FDA-Public Use
  Company Number: PHHY2011TR51962

PATIENT
  Age: 52 Year
  Sex: Male

DRUGS (4)
  1. PREDNISONE [Suspect]
     Indication: LYMPHOMA
  2. CYCLOPHOSPHAMIDE [Suspect]
     Indication: LYMPHOMA
  3. VINCRISTINE [Suspect]
     Indication: LYMPHOMA
  4. RITUXIMAB [Suspect]
     Indication: LYMPHOMA

REACTIONS (2)
  - HEPATITIS B [None]
  - ACUTE HEPATIC FAILURE [None]
